FAERS Safety Report 9491565 (Version 1)
Quarter: 2013Q1

REPORT INFORMATION
  Report Type: Not Available
  Country: US (occurrence: US)
  Receive Date: 20121219
  Receipt Date: 20121219
  Transmission Date: 20140127
  Serious: No
  Sender: FDA-Public Use
  Company Number: US-LUNDBECK-DKLU1082220

PATIENT
  Sex: Male

DRUGS (1)
  1. ONFI [Suspect]
     Indication: GRAND MAL CONVULSION
     Route: 048
     Dates: start: 20120501, end: 20120604

REACTIONS (3)
  - Abnormal behaviour [Unknown]
  - Anger [Unknown]
  - Agitation [Unknown]
